FAERS Safety Report 6466640-3 (Version None)
Quarter: 2009Q4

REPORT INFORMATION
  Report Type: 
  Country: None (occurrence: None)
  Receive Date: 20091202
  Receipt Date: 20091126
  Transmission Date: 20100525
  Serious: Yes (Other)
  Sender: FDA-Public Use
  Company Number: HK-PFIZER INC-2009303507

PATIENT

DRUGS (1)
  1. SOLU-CORTEF [Suspect]

REACTIONS (4)
  - DYSPNOEA [None]
  - PHARYNGEAL OEDEMA [None]
  - SWELLING [None]
  - SWELLING FACE [None]
